FAERS Safety Report 19233265 (Version 2)
Quarter: 2021Q2

REPORT INFORMATION
  Report Type: Report from Study
  Country: GB (occurrence: GB)
  Receive Date: 20210507
  Receipt Date: 20210513
  Transmission Date: 20210717
  Serious: Yes (Hospitalization, Other)
  Sender: FDA-Public Use
  Company Number: GB-TEVA-2018-GB-909243

PATIENT
  Age: 43 Year
  Sex: Female

DRUGS (38)
  1. PACLITAXEL. [Suspect]
     Active Substance: PACLITAXEL
     Dosage: 340 MG,Q3W
     Route: 042
     Dates: start: 20150709, end: 20150709
  2. PERTUZUMAB. [Suspect]
     Active Substance: PERTUZUMAB
     Dosage: MAINTAINACE DOSE
     Route: 042
     Dates: start: 20150709
  3. PACLITAXEL. [Suspect]
     Active Substance: PACLITAXEL
     Dosage: LOADING DOSE (450 MG); 450 MG,3 (450 MG)
     Route: 042
     Dates: start: 20150730, end: 20150730
  4. PERTUZUMAB. [Suspect]
     Active Substance: PERTUZUMAB
     Indication: BREAST CANCER METASTATIC
     Dosage: 420 MG, Q3W (MAINTAINANCE DOSE)
     Route: 042
     Dates: start: 20150709
  5. PERTUZUMAB. [Suspect]
     Active Substance: PERTUZUMAB
     Dosage: LOADING DOSE; 840 MG
     Route: 042
     Dates: start: 20150615, end: 20150615
  6. TRASTUZUMAB. [Suspect]
     Active Substance: TRASTUZUMAB
     Dosage: 420 MG, TIW (MAINTAINANCE DOSE)
     Route: 042
     Dates: start: 20150709, end: 20150709
  7. CHLORPHENAMINE [Concomitant]
     Active Substance: CHLORPHENIRAMINE MALEATE
     Indication: PRODUCT USED FOR UNKNOWN INDICATION
     Dosage: 10 MG,UNK
     Route: 042
     Dates: start: 20150709, end: 20150709
  8. PACLITAXEL. [Suspect]
     Active Substance: PACLITAXEL
     Dosage: 450 MG, QW3 (LOADING DOSE); 1350 MG
     Route: 042
     Dates: start: 20150730, end: 20150730
  9. DOCETAXEL. [Suspect]
     Active Substance: DOCETAXEL
     Dosage: 130 MG, BIW (130 MG, Q3W)
     Route: 042
     Dates: start: 20150709, end: 20150709
  10. COCODAMOL [Concomitant]
     Active Substance: ACETAMINOPHEN\CODEINE PHOSPHATE
     Dosage: 2000 MILLIGRAM DAILY;
     Route: 048
  11. CO?AMOXICLAV [Concomitant]
     Active Substance: AMOXICILLIN\CLAVULANATE POTASSIUM
     Indication: COUGH
     Dosage: COUGH WITH YELLOW SPUTUM
     Route: 048
     Dates: start: 20180110, end: 20180117
  12. PACLITAXEL. [Suspect]
     Active Substance: PACLITAXEL
     Dosage: 450 MG, BIW (450 MG, Q3W)
     Route: 042
     Dates: start: 20150820, end: 20150820
  13. HERCEPTIN [Suspect]
     Active Substance: TRASTUZUMAB
     Dosage: 420 MG, Q3W
     Route: 042
     Dates: start: 20150709, end: 20150709
  14. TRASTUZUMAB. [Suspect]
     Active Substance: TRASTUZUMAB
     Indication: BREAST CANCER METASTATIC
     Dosage: 420MG (MAINTAINANCE DOSE.)
     Route: 042
     Dates: start: 20150709, end: 20150709
  15. METFORMIN [Concomitant]
     Active Substance: METFORMIN HYDROCHLORIDE
     Dosage: 2 GRAM DAILY;
     Route: 048
  16. PACLITAXEL. [Suspect]
     Active Substance: PACLITAXEL
     Dosage: 340 MG, Q3W
     Route: 042
     Dates: start: 20150910, end: 20150910
  17. DOCETAXEL. [Suspect]
     Active Substance: DOCETAXEL
     Indication: BREAST CANCER METASTATIC
     Dosage: 130 MG, Q3W
     Route: 042
     Dates: start: 20150616, end: 20150616
  18. DOCETAXEL. [Suspect]
     Active Substance: DOCETAXEL
     Dosage: 130 MG, Q3W
     Route: 042
     Dates: start: 20150616, end: 20150616
  19. HERCEPTIN [Suspect]
     Active Substance: TRASTUZUMAB
     Dosage: 420 MG, Q3W (MAINTAINANCE DOSE)
     Route: 042
     Dates: start: 20150709
  20. HYDROCORTISONE. [Concomitant]
     Active Substance: HYDROCORTISONE
     Indication: PRODUCT USED FOR UNKNOWN INDICATION
     Dosage: 100 MG,UNK
     Route: 042
     Dates: start: 20150709, end: 20150709
  21. DOMPERIDONE [Concomitant]
     Active Substance: DOMPERIDONE
     Indication: PRODUCT USED FOR UNKNOWN INDICATION
     Dosage: 10 MILLIGRAM DAILY;
     Route: 048
     Dates: start: 20150709
  22. METFORMIN [Concomitant]
     Active Substance: METFORMIN HYDROCHLORIDE
     Indication: DIABETES MELLITUS
     Dosage: 1 GRAM DAILY;
     Route: 048
  23. PACLITAXEL. [Suspect]
     Active Substance: PACLITAXEL
     Indication: BREAST CANCER METASTATIC
     Dosage: 340 MG, Q3W
     Route: 042
     Dates: start: 20150910, end: 20151022
  24. DOCETAXEL. [Suspect]
     Active Substance: DOCETAXEL
     Dosage: 130 MG, Q3W
     Route: 042
     Dates: start: 20150616, end: 20150709
  25. HERCEPTIN [Suspect]
     Active Substance: TRASTUZUMAB
     Dosage: MAINTANANCE DOSE.; 420 MG, BIW (420 MG, Q3W)
     Route: 042
     Dates: start: 20150709, end: 20150709
  26. COCODAMOL [Concomitant]
     Active Substance: ACETAMINOPHEN\CODEINE PHOSPHATE
     Indication: PRODUCT USED FOR UNKNOWN INDICATION
     Dosage: 500 MILLIGRAM DAILY;
     Route: 048
  27. TRAMADOL. [Concomitant]
     Active Substance: TRAMADOL
     Indication: PAIN
     Dosage: 50 MILLIGRAM DAILY;
     Route: 048
  28. PACLITAXEL. [Suspect]
     Active Substance: PACLITAXEL
     Dosage: 340 MG, Q3W
     Route: 042
     Dates: start: 20151022, end: 20151022
  29. TRASTUZUMAB. [Suspect]
     Active Substance: TRASTUZUMAB
     Dosage: 567 MG (LOADING DOSE) (TOTAL)
     Route: 041
     Dates: start: 20150616, end: 20150616
  30. PACLITAXEL. [Suspect]
     Active Substance: PACLITAXEL
     Dosage: 450 MG, Q3W
     Route: 042
     Dates: start: 20150730, end: 20150820
  31. PACLITAXEL. [Suspect]
     Active Substance: PACLITAXEL
     Dosage: LOADING DOSE (450 MG)
     Route: 042
     Dates: start: 20150730, end: 20150730
  32. DOCETAXEL. [Suspect]
     Active Substance: DOCETAXEL
     Dosage: 260 MG
     Route: 065
  33. HERCEPTIN [Suspect]
     Active Substance: TRASTUZUMAB
     Indication: BREAST CANCER METASTATIC
     Dosage: 567 MILLIGRAM DAILY; LOADING DOSE.
     Route: 042
     Dates: start: 20150616, end: 20150616
  34. TRASTUZUMAB. [Suspect]
     Active Substance: TRASTUZUMAB
     Indication: BREAST CANCER METASTATIC
     Dosage: 567 MILLIGRAM DAILY; 567 MG, QD (LOADING DOSE)
     Route: 041
     Dates: start: 20150616, end: 20150616
  35. TRASTUZUMAB. [Suspect]
     Active Substance: TRASTUZUMAB
     Dosage: 420 MG, Q3W (MAINTENANCE DOSE)
     Route: 042
     Dates: start: 20150709
  36. TRAMADOL. [Concomitant]
     Active Substance: TRAMADOL
     Dosage: 100 MILLIGRAM DAILY;
     Route: 048
  37. DOMPERIDONE [Concomitant]
     Active Substance: DOMPERIDONE
     Dosage: 30 MILLIGRAM DAILY; 30 MG, QD
     Route: 048
     Dates: start: 20190709
  38. PACLITAXEL. [Suspect]
     Active Substance: PACLITAXEL
     Dosage: LOADING DOSE
     Route: 042
     Dates: start: 20150820, end: 20150820

REACTIONS (8)
  - Fatigue [Recovered/Resolved]
  - Diarrhoea [Recovered/Resolved]
  - Chest pain [Recovered/Resolved]
  - Chest pain [Not Recovered/Not Resolved]
  - Mucosal inflammation [Recovered/Resolved]
  - Neuropathy peripheral [Recovered/Resolved]
  - Swelling [Not Recovered/Not Resolved]
  - Febrile neutropenia [Recovered/Resolved]

NARRATIVE: CASE EVENT DATE: 20150908
